FAERS Safety Report 25657547 (Version 3)
Quarter: 2025Q3

REPORT INFORMATION
  Report Type: Spontaneous
  Country: US (occurrence: US)
  Receive Date: 20250808
  Receipt Date: 20250924
  Transmission Date: 20251020
  Serious: Yes (Death, Other)
  Sender: SUNOVION
  Company Number: US-SMPA-2025SPA010136

PATIENT
  Age: 65 Year
  Sex: Male

DRUGS (16)
  1. ORGOVYX [Suspect]
     Active Substance: RELUGOLIX
     Indication: Prostate cancer
     Route: 048
     Dates: start: 20250730, end: 20250730
  2. ORGOVYX [Suspect]
     Active Substance: RELUGOLIX
     Route: 048
  3. FAMOTIDINE [Concomitant]
     Active Substance: FAMOTIDINE
  4. ALLOPURINOL [Concomitant]
     Active Substance: ALLOPURINOL
  5. B complex + vitamin c [Concomitant]
  6. CYANOCOBALAMIN [Concomitant]
     Active Substance: CYANOCOBALAMIN
  7. HYDRALAZINE HCL [Concomitant]
     Active Substance: HYDRALAZINE HYDROCHLORIDE
  8. HYDROXYZINE HYDROCHLORIDE [Concomitant]
     Active Substance: HYDROXYZINE HYDROCHLORIDE
  9. LABETALOL HYDROCHLORIDE [Concomitant]
     Active Substance: LABETALOL HYDROCHLORIDE
  10. OXYCODONE HYDROCHLORIDE [Concomitant]
     Active Substance: OXYCODONE HYDROCHLORIDE
  11. PROTONIX [Concomitant]
     Active Substance: PANTOPRAZOLE SODIUM
     Route: 048
  12. TRAMADOL HCL [Concomitant]
     Active Substance: TRAMADOL HYDROCHLORIDE
  13. TRIAMCINOLONE ACETONIDE [Concomitant]
     Active Substance: TRIAMCINOLONE ACETONIDE
  14. TYLENOL 8HR [Concomitant]
     Active Substance: ACETAMINOPHEN
  15. VITAMIN D [Concomitant]
     Active Substance: VITAMIN D NOS
  16. XOFIGO [Concomitant]
     Active Substance: RADIUM RA-223 DICHLORIDE

REACTIONS (4)
  - Death [Fatal]
  - Hallucination [Unknown]
  - General physical health deterioration [Unknown]
  - Urinary tract infection [Unknown]
